FAERS Safety Report 7553804-0 (Version None)
Quarter: 2011Q2

REPORT INFORMATION
  Report Type: 
  Country: None (occurrence: None)
  Receive Date: 20110614
  Receipt Date: 20110614
  Transmission Date: 20111010
  Serious: Yes (Death, Life-Threatening, Hospitalization)
  Sender: FDA-Public Use
  Company Number: None

PATIENT
  Sex: Male
  Weight: 83.0083 kg

DRUGS (1)
  1. AMIODARONE HCL [Suspect]
     Indication: CARDIAC FAILURE CONGESTIVE
     Dosage: 1 TABLET DAILY
     Dates: start: 20091123, end: 20110409

REACTIONS (7)
  - THYROID DISORDER [None]
  - LUNG DISORDER [None]
  - TOXICITY TO VARIOUS AGENTS [None]
  - LIVER INJURY [None]
  - COORDINATION ABNORMAL [None]
  - RENAL DISORDER [None]
  - DYSPNOEA [None]
